FAERS Safety Report 4494003-9 (Version None)
Quarter: 2004Q4

REPORT INFORMATION
  Report Type: 
  Country: None (occurrence: None)
  Receive Date: 20041105
  Receipt Date: 20041028
  Transmission Date: 20050328
  Serious: Yes (Death)
  Sender: FDA-Public Use
  Company Number: JP-JNJFOC-20040904715

PATIENT
  Sex: Female

DRUGS (20)
  1. DUROTEP [Suspect]
     Route: 062
  2. DUROTEP [Suspect]
     Route: 062
  3. DUROTEP [Suspect]
     Route: 062
  4. DUROTEP [Suspect]
     Route: 062
  5. DUROTEP [Suspect]
     Route: 062
  6. DUROTEP [Suspect]
     Route: 062
  7. DUROTEP [Suspect]
     Route: 062
  8. DUROTEP [Suspect]
     Route: 062
  9. DUROTEP [Suspect]
     Route: 062
  10. DUROTEP [Suspect]
     Route: 062
  11. DUROTEP [Suspect]
     Route: 062
  12. DUROTEP [Suspect]
     Indication: CANCER PAIN
     Route: 062
  13. RABEPRAZOLE SODIUM [Concomitant]
     Dosage: 1 DAILY
     Route: 049
  14. MOSAPRIDE CITRATE [Concomitant]
     Dosage: 3 DAILY
     Route: 049
  15. PANTETHINE [Concomitant]
     Route: 049
  16. MAGNESIUM OXIDE [Concomitant]
     Route: 049
  17. SENNOSIDE-LAXATIVE [Concomitant]
     Dosage: 1 DAILY
     Route: 049
  18. SENNA LEAF AND SENNA POD [Concomitant]
     Route: 049
  19. NIFEDIPINE [Concomitant]
     Dosage: 1 DAILY
     Route: 049
  20. CANDESARTAN CILEXETIL [Concomitant]
     Dosage: 1 DAILY
     Route: 049

REACTIONS (4)
  - DELIRIUM [None]
  - DISORIENTATION [None]
  - DRUG INEFFECTIVE [None]
  - MALIGNANT NEOPLASM PROGRESSION [None]
